FAERS Safety Report 13485203 (Version 5)
Quarter: 2017Q3

REPORT INFORMATION
  Report Type: Spontaneous
  Country: IT (occurrence: IT)
  Receive Date: 20170425
  Receipt Date: 20170809
  Transmission Date: 20171127
  Serious: Yes (Hospitalization)
  Sender: FDA-Public Use
  Company Number: IT-ACCORD-050617

PATIENT
  Age: 40 Year
  Sex: Female
  Weight: 64 kg

DRUGS (4)
  1. FLUOROURACIL. [Suspect]
     Active Substance: FLUOROURACIL
     Indication: ADENOCARCINOMA OF COLON
     Dosage: ALSO RECEIVED 4000 MG CYCLICAL IV DRIP
     Route: 040
     Dates: start: 20151126
  2. FOLIC ACID. [Concomitant]
     Active Substance: FOLIC ACID
     Route: 042
     Dates: start: 20151126, end: 20160303
  3. ERBITUX [Suspect]
     Active Substance: CETUXIMAB
     Indication: ADENOCARCINOMA OF COLON
     Dates: start: 20151126
  4. LEVOFOLINIC ACID [Concomitant]
     Active Substance: LEVOLEUCOVORIN
     Indication: ADENOCARCINOMA OF COLON
     Route: 040
     Dates: start: 20151126, end: 20160303

REACTIONS (3)
  - Rash [Unknown]
  - Nail disorder [Recovering/Resolving]
  - Presyncope [Recovering/Resolving]

NARRATIVE: CASE EVENT DATE: 20160108
